FAERS Safety Report 23561251 (Version 1)
Quarter: 2024Q1

REPORT INFORMATION
  Report Type: Spontaneous
  Country: FR (occurrence: FR)
  Receive Date: 20240224
  Receipt Date: 20240224
  Transmission Date: 20240409
  Serious: Yes (Other)
  Sender: FDA-Public Use
  Company Number: None

PATIENT
  Age: 83 Year
  Sex: Male
  Weight: 61 kg

DRUGS (4)
  1. FLUOROURACIL [Suspect]
     Active Substance: FLUOROURACIL
     Indication: Oesophageal carcinoma
     Dosage: 50 MG/ML, 4200 MG IVC + 700 MG IVPS EVERY 2 WEEKS
     Dates: start: 20230918, end: 20231027
  2. OXALIPLATIN [Suspect]
     Active Substance: OXALIPLATIN
     Indication: Oesophageal carcinoma
     Dosage: 5 MG/ML, CONCENTRATE FOR SOLUTION FOR INFUSION
     Dates: start: 20230918, end: 20231027
  3. NIVOLUMAB [Suspect]
     Active Substance: NIVOLUMAB
     Indication: Oesophageal carcinoma
     Dosage: 10 MG/ML, CONCENTRATE FOR SOLUTION FOR INFUSION
     Dates: start: 20230918, end: 20231027
  4. LEUCOVORIN CALCIUM [Suspect]
     Active Substance: LEUCOVORIN CALCIUM
     Indication: Oesophageal carcinoma
     Dates: start: 20230918, end: 20231027

REACTIONS (2)
  - Interstitial lung disease [Recovering/Resolving]
  - Hypothyroidism [Recovered/Resolved]

NARRATIVE: CASE EVENT DATE: 20231025
